FAERS Safety Report 7469815-X (Version None)
Quarter: 2011Q2

REPORT INFORMATION
  Report Type: 
  Country: None (occurrence: None)
  Receive Date: 20110510
  Receipt Date: 20101011
  Transmission Date: 20111010
  Serious: Yes (Hospitalization)
  Sender: FDA-Public Use
  Company Number: AT-ROCHE-679331

PATIENT
  Sex: Female

DRUGS (3)
  1. SIMULECT [Suspect]
     Indication: LIVER TRANSPLANT
     Dosage: DRUG: SIMULECT (BASILIXIMAB)
     Route: 042
     Dates: start: 20080715, end: 20080719
  2. MYCOPHENOLATE MOFETIL [Suspect]
     Indication: LIVER TRANSPLANT
     Route: 042
     Dates: start: 20080715
  3. BELATACEPT [Suspect]
     Indication: LIVER TRANSPLANT
     Dosage: PATIENT WAS TAKING MORE INTENSE REGIMEN
     Route: 042
     Dates: start: 20080715

REACTIONS (1)
  - SPINAL COMPRESSION FRACTURE [None]
